FAERS Safety Report 21086779 (Version 1)
Quarter: 2022Q3

REPORT INFORMATION
  Report Type: Other
  Country: AT (occurrence: None)
  Receive Date: 20220715
  Receipt Date: 20220715
  Transmission Date: 20221026
  Serious: Yes (Death)
  Sender: FDA-Public Use
  Company Number: AT-ROCHE-3136647

PATIENT
  Age: 73 Year
  Sex: Female

DRUGS (1)
  1. RITUXIMAB [Suspect]
     Active Substance: RITUXIMAB
     Indication: Myasthenia gravis
     Dosage: 2 X 500 MG WITHIN 2 WEEKS, AND MAINTENANCE THERAPY WITH REPEATED INFUSIONS.
     Route: 042

REACTIONS (2)
  - COVID-19 pneumonia [Fatal]
  - B-lymphocyte count decreased [Unknown]
